FAERS Safety Report 8965971 (Version 1)
Quarter: 2012Q4

REPORT INFORMATION
  Report Type: 
  Country: FR (occurrence: FR)
  Receive Date: 20121217
  Receipt Date: 20121217
  Transmission Date: 20130627
  Serious: Yes (Hospitalization)
  Sender: FDA-Public Use
  Company Number: PHHY2012FR115410

PATIENT
  Sex: Female

DRUGS (2)
  1. ERGOTAMINE TARTRATE AND CAFFEINE [Suspect]
     Indication: MIGRAINE
     Dosage: 3 DF, daily
     Route: 048
  2. LAMALINE [Suspect]
     Indication: PAIN
     Dosage: 5 DF, daily
     Route: 048

REACTIONS (3)
  - Drug abuse [Recovering/Resolving]
  - Tension headache [Recovering/Resolving]
  - Intentional drug misuse [Recovering/Resolving]
